FAERS Safety Report 4299939-X (Version None)
Quarter: 2004Q1

REPORT INFORMATION
  Report Type: 
  Country: None (occurrence: None)
  Receive Date: 20040218
  Receipt Date: 20040205
  Transmission Date: 20041129
  Serious: Yes (Hospitalization)
  Sender: FDA-Public Use
  Company Number: GB-JNJFOC-20040201249

PATIENT
  Age: 17 Year
  Sex: Male

DRUGS (1)
  1. REMICADE [Suspect]
     Indication: DRUG USE FOR UNKNOWN INDICATION
     Dosage: INJECTION
     Route: 042

REACTIONS (1)
  - DYSPNOEA [None]
